FAERS Safety Report 13685477 (Version 7)
Quarter: 2022Q2

REPORT INFORMATION
  Report Type: Spontaneous
  Country: NL (occurrence: NL)
  Receive Date: 20170623
  Receipt Date: 20220610
  Transmission Date: 20220720
  Serious: Yes (Life-Threatening, Hospitalization, Other)
  Sender: FDA-Public Use
  Company Number: NL-MLMSERVICE-20170606-0756798-1

PATIENT
  Age: 53 Year
  Sex: Female

DRUGS (8)
  1. HERBESSER [Suspect]
     Active Substance: DILTIAZEM HYDROCHLORIDE
     Indication: Intentional overdose
     Dosage: TOTAL
     Route: 065
  2. CALCIUM GLUCONATE [Suspect]
     Active Substance: CALCIUM GLUCONATE
     Indication: Cardiogenic shock
     Route: 040
  3. CALCIUM GLUCONATE [Suspect]
     Active Substance: CALCIUM GLUCONATE
     Dosage: EVERY HOUR
     Route: 040
  4. CALCIUM GLUCONATE [Suspect]
     Active Substance: CALCIUM GLUCONATE
     Dosage: EVERY HOUR
     Route: 040
  5. CALCIUM GLUCONATE [Suspect]
     Active Substance: CALCIUM GLUCONATE
     Dosage: EVERY HOUR
     Route: 040
  6. CALCIUM GLUCONATE [Suspect]
     Active Substance: CALCIUM GLUCONATE
     Route: 040
  7. CALCIUM GLUCONATE [Suspect]
     Active Substance: CALCIUM GLUCONATE
     Dosage: 3000 MG,QH; IV BOLUS
     Route: 040
  8. CALCIUM GLUCONATE [Suspect]
     Active Substance: CALCIUM GLUCONATE
     Dosage: 6000 MG,QH; IV BOLUS
     Route: 040

REACTIONS (16)
  - Cardiogenic shock [Recovering/Resolving]
  - Rhythm idioventricular [Unknown]
  - Heart rate decreased [Recovered/Resolved]
  - Depressed level of consciousness [Unknown]
  - Lactic acidosis [Recovering/Resolving]
  - Urinary incontinence [Unknown]
  - Hyperglycaemia [Unknown]
  - Blood potassium increased [Unknown]
  - Pancreatitis necrotising [Recovered/Resolved]
  - Reperfusion injury [Recovering/Resolving]
  - Ischaemia [Recovering/Resolving]
  - Blood pressure decreased [Recovering/Resolving]
  - Vomiting [Recovering/Resolving]
  - Atrioventricular block complete [Recovering/Resolving]
  - Drug level increased [Recovering/Resolving]
  - Toxicity to various agents [Recovering/Resolving]
